FAERS Safety Report 9212529 (Version 1)
Quarter: 2013Q2

REPORT INFORMATION
  Report Type: Spontaneous
  Country: US (occurrence: US)
  Receive Date: 20130405
  Receipt Date: 20130405
  Transmission Date: 20140414
  Serious: Yes (Hospitalization)
  Sender: FDA-Public Use
  Company Number: US-AMGEN-USASP2013022674

PATIENT
  Age: 63 Year
  Sex: Female

DRUGS (6)
  1. NEULASTA [Suspect]
     Indication: PRODUCT USED FOR UNKNOWN INDICATION
     Dosage: UNK
     Dates: start: 20130325
  2. RITUXIMAB [Concomitant]
     Indication: DIFFUSE LARGE B-CELL LYMPHOMA STAGE II
     Dosage: UNK
     Dates: start: 20130322
  3. CYCLOPHOSPHAMIDE [Concomitant]
     Indication: DIFFUSE LARGE B-CELL LYMPHOMA STAGE II
     Dosage: UNK
     Dates: start: 20130322
  4. DOXORUBICIN [Concomitant]
     Indication: DIFFUSE LARGE B-CELL LYMPHOMA STAGE II
     Dosage: UNK
     Dates: start: 20130322
  5. VINCRISTINE [Concomitant]
     Indication: DIFFUSE LARGE B-CELL LYMPHOMA STAGE II
     Dosage: UNK
     Dates: start: 20130322
  6. PREDNISONE [Concomitant]
     Indication: DIFFUSE LARGE B-CELL LYMPHOMA STAGE II
     Dosage: UNK
     Dates: start: 20130322

REACTIONS (3)
  - Bone pain [Not Recovered/Not Resolved]
  - Haematochezia [Unknown]
  - White blood cell count abnormal [Unknown]
